FAERS Safety Report 25276709 (Version 3)
Quarter: 2025Q4

REPORT INFORMATION
  Report Type: Spontaneous
  Country: EU (occurrence: EU)
  Receive Date: 20250507
  Receipt Date: 20251121
  Transmission Date: 20260118
  Serious: Yes (Hospitalization, Disabling, Other)
  Sender: ALEXION PHARMACEUTICALS
  Company Number: None

PATIENT
  Age: 61 Year
  Sex: Female

DRUGS (12)
  1. ROSUVASTATIN [Suspect]
     Active Substance: ROSUVASTATIN
     Indication: Myocardial ischaemia
     Dosage: 40 MILLIGRAM
     Dates: start: 20131008, end: 20250319
  2. MOUNJARO [Suspect]
     Active Substance: TIRZEPATIDE
     Indication: Obesity
     Dosage: 5 MILLIGRAM
  3. MOUNJARO [Suspect]
     Active Substance: TIRZEPATIDE
     Indication: Obesity
  4. SUMATRIPTAN [Concomitant]
     Active Substance: SUMATRIPTAN
     Dosage: 50 MILLIGRAM
  5. PREGABALIN [Concomitant]
     Active Substance: PREGABALIN
     Dosage: 225 MILLIGRAM
     Route: 065
  6. AMITRIPTYLINE [Concomitant]
     Active Substance: AMITRIPTYLINE
     Dosage: 25 MILLIGRAM
     Route: 065
  7. IMOVANE [Concomitant]
     Active Substance: ZOPICLONE
     Dosage: 5 MILLIGRAM
     Route: 065
  8. ASPIRIN [Concomitant]
     Active Substance: ASPIRIN
     Dosage: 75 MILLIGRAM, 1/DAY
     Route: 065
     Dates: start: 20190513
  9. ESCITALOPRAM [Concomitant]
     Active Substance: ESCITALOPRAM OXALATE
     Dosage: 20 MILLIGRAM, 1/DAY
     Route: 065
     Dates: start: 20240110
  10. METOPROLOL [Concomitant]
     Active Substance: METOPROLOL
     Dosage: 100 MILLIGRAM, 1/DAY
     Route: 065
     Dates: start: 20190513
  11. PROPIOMAZINE [Concomitant]
     Active Substance: PROPIOMAZINE
     Dosage: 25 MILLIGRAM
     Route: 065
  12. ACETAMINOPHEN [Concomitant]
     Active Substance: ACETAMINOPHEN
     Dosage: 1 GRAM, EVERY 12 HRS
     Route: 065
     Dates: start: 20181217

REACTIONS (5)
  - Rhabdomyolysis [Recovered/Resolved with Sequelae]
  - Acute kidney injury [Recovered/Resolved with Sequelae]
  - Liver disorder [Recovered/Resolved]
  - Abdominal discomfort [Unknown]
  - Myalgia [Unknown]

NARRATIVE: CASE EVENT DATE: 20230301
